FAERS Safety Report 10786073 (Version 15)
Quarter: 2025Q2

REPORT INFORMATION
  Report Type: Report from Study
  Country: IN (occurrence: None)
  Receive Date: 20150211
  Receipt Date: 20250422
  Transmission Date: 20250717
  Serious: Yes (Hospitalization, Other)
  Sender: INCYTE
  Company Number: IN-002147023-PHHY2014IN107800

PATIENT
  Age: 75 Year

DRUGS (19)
  1. RUXOLITINIB [Suspect]
     Active Substance: RUXOLITINIB
     Indication: Myelofibrosis
     Dosage: 15 MG, BID
  2. RUXOLITINIB [Suspect]
     Active Substance: RUXOLITINIB
     Indication: Polycythaemia vera
     Dosage: 20 MG, QD
  3. RUXOLITINIB [Suspect]
     Active Substance: RUXOLITINIB
     Indication: Janus kinase 2 mutation
     Dosage: 5 MG, BID
  4. RUXOLITINIB [Suspect]
     Active Substance: RUXOLITINIB
     Dosage: 10 MG, BID
  5. RUXOLITINIB [Suspect]
     Active Substance: RUXOLITINIB
     Dosage: 15 MG, BID
  6. RUXOLITINIB [Suspect]
     Active Substance: RUXOLITINIB
     Dosage: 5 MG, BID
  7. RUXOLITINIB [Suspect]
     Active Substance: RUXOLITINIB
     Dosage: 15 MG, BID
  8. RUXOLITINIB [Suspect]
     Active Substance: RUXOLITINIB
     Dosage: 10 MG, BID
  9. RUXOLITINIB [Suspect]
     Active Substance: RUXOLITINIB
     Dosage: 15 MG, BID
  10. RUXOLITINIB [Suspect]
     Active Substance: RUXOLITINIB
     Dosage: 15 MG, BID
  11. RUXOLITINIB [Suspect]
     Active Substance: RUXOLITINIB
     Dosage: 15 MG, BID
  12. RUXOLITINIB [Suspect]
     Active Substance: RUXOLITINIB
     Dosage: 15 MG, QD
  13. RUXOLITINIB [Suspect]
     Active Substance: RUXOLITINIB
     Dosage: 15 MG, QD
  14. RUXOLITINIB [Suspect]
     Active Substance: RUXOLITINIB
  15. RUXOLITINIB [Suspect]
     Active Substance: RUXOLITINIB
     Dosage: 20 MG, QD
  16. RUXOLITINIB [Suspect]
     Active Substance: RUXOLITINIB
     Dosage: 20 MG, QD
     Route: 065
  17. RUXOLITINIB [Suspect]
     Active Substance: RUXOLITINIB
     Dosage: 20 MG, QD
  18. FLOVIT [Concomitant]
     Indication: Blood uric acid abnormal
     Dosage: 5 MG, QD
  19. Bio d3 [Concomitant]
     Indication: Blood calcium abnormal

REACTIONS (14)
  - Platelet count decreased [Recovered/Resolved]
  - Hyperuricaemia [Unknown]
  - Hypersensitivity [Not Recovered/Not Resolved]
  - Pruritus [Not Recovered/Not Resolved]
  - Leukocytosis [Unknown]
  - Lipoma [Unknown]
  - Fibromyalgia [Unknown]
  - Chronic myeloid leukaemia [Unknown]
  - Polycythaemia [Unknown]
  - Splenomegaly [Unknown]
  - Thrombocytopenia [Unknown]
  - Tuberculosis [Unknown]
  - Product use issue [Unknown]
  - White blood cell count decreased [Unknown]
